FAERS Safety Report 23205614 (Version 1)
Quarter: 2023Q4

REPORT INFORMATION
  Report Type: Spontaneous
  Country: US (occurrence: None)
  Receive Date: 20231117
  Receipt Date: 20231117
  Transmission Date: 20240110
  Serious: Yes (Death)
  Sender: FDA-Public Use
  Company Number: None

PATIENT
  Age: 84 Year
  Sex: Female

DRUGS (3)
  1. TEMOZOLOMIDE [Suspect]
     Active Substance: TEMOZOLOMIDE
     Dosage: FREQUENCY : DAILY;?
     Route: 048
     Dates: start: 202307
  2. CAPECITABlNE [Concomitant]
  3. XELODA [Concomitant]
     Active Substance: CAPECITABINE

REACTIONS (2)
  - Disease complication [None]
  - Malignant neoplasm progression [None]

NARRATIVE: CASE EVENT DATE: 20231108
